FAERS Safety Report 24108437 (Version 1)
Quarter: 2024Q3

REPORT INFORMATION
  Report Type: Spontaneous
  Country: FR (occurrence: FR)
  Receive Date: 20240718
  Receipt Date: 20240718
  Transmission Date: 20241016
  Serious: Yes (Other)
  Sender: AMGEN
  Company Number: FR-AMGEN-FRASP2024138497

PATIENT
  Age: 26 Year
  Sex: Male

DRUGS (3)
  1. PANITUMUMAB [Suspect]
     Active Substance: PANITUMUMAB
     Indication: Colon cancer metastatic
     Dosage: UNK
     Route: 065
     Dates: start: 201909, end: 2021
  2. DABRAFENIB [Suspect]
     Active Substance: DABRAFENIB
     Indication: Colon cancer metastatic
     Dosage: UNK
     Route: 065
     Dates: start: 201909, end: 2021
  3. TRAMETINIB [Suspect]
     Active Substance: TRAMETINIB
     Indication: Colon cancer metastatic
     Dosage: UNK
     Route: 065
     Dates: start: 201909, end: 2021

REACTIONS (5)
  - Colon cancer metastatic [Unknown]
  - Drug intolerance [Unknown]
  - Skin toxicity [Unknown]
  - Therapy partial responder [Unknown]
  - Off label use [Unknown]

NARRATIVE: CASE EVENT DATE: 20210101
